FAERS Safety Report 9249330 (Version 1)
Quarter: 2013Q2

REPORT INFORMATION
  Report Type: Spontaneous
  Country: US (occurrence: US)
  Receive Date: 20130423
  Receipt Date: 20130423
  Transmission Date: 20140414
  Serious: Yes (Other)
  Sender: FDA-Public Use
  Company Number: US-UCBSA-083644

PATIENT
  Age: 53 Year
  Sex: Male

DRUGS (4)
  1. CIMZIA [Suspect]
     Indication: RHEUMATOID ARTHRITIS
     Dates: start: 201202
  2. PREDNISONE [Concomitant]
     Dosage: UNKNOWN DOSE
  3. PREDNISONE [Concomitant]
     Dosage: UNKNOWN LOWER DOSE
     Dates: start: 201303
  4. METHOTREXATE [Concomitant]

REACTIONS (3)
  - Drug hypersensitivity [Unknown]
  - Flushing [Unknown]
  - Local swelling [Unknown]
